FAERS Safety Report 23516796 (Version 2)
Quarter: 2024Q4

REPORT INFORMATION
  Report Type: Spontaneous
  Country: US (occurrence: US)
  Receive Date: 20240213
  Receipt Date: 20241104
  Transmission Date: 20250115
  Serious: Yes (Life-Threatening, Hospitalization, Other)
  Sender: UCB
  Company Number: US-UCBSA-2024004982

PATIENT
  Age: 51 Year
  Sex: Male

DRUGS (12)
  1. LEVETIRACETAM [Interacting]
     Active Substance: LEVETIRACETAM
     Indication: Anxiety
     Dosage: UNK
  2. LEVETIRACETAM [Interacting]
     Active Substance: LEVETIRACETAM
     Indication: Off label use
  3. SULFAMETHOXAZOLE\TRIMETHOPRIM [Interacting]
     Active Substance: SULFAMETHOXAZOLE\TRIMETHOPRIM
     Indication: Urinary tract infection
     Dosage: UNK
  4. CALCIUM CHLORIDE\POTASSIUM CHLORIDE\SODIUM ACETATE\SODIUM CHLORIDE [Concomitant]
     Active Substance: CALCIUM CHLORIDE\POTASSIUM CHLORIDE\SODIUM ACETATE\SODIUM CHLORIDE
     Indication: Product used for unknown indication
     Dosage: UNK
  5. CEFTRIAXONE [Concomitant]
     Active Substance: CEFTRIAXONE
     Indication: Antibiotic therapy
     Dosage: 1 GRAM/ DAILY
     Route: 042
  6. METRONIDAZOLE [Concomitant]
     Active Substance: METRONIDAZOLE
     Indication: Antibiotic therapy
     Dosage: 500 MILLIGRAM, 2X/DAY (BID)
     Route: 042
  7. MICAFUNGIN [Concomitant]
     Active Substance: MICAFUNGIN SODIUM
     Indication: Systemic candida
     Dosage: UNK
  8. MICAFUNGIN [Concomitant]
     Active Substance: MICAFUNGIN SODIUM
     Indication: Urinary tract infection
  9. CIPROFLOXACIN [Concomitant]
     Active Substance: CIPROFLOXACIN
     Indication: Systemic candida
     Dosage: UNK
  10. CIPROFLOXACIN [Concomitant]
     Active Substance: CIPROFLOXACIN
     Indication: Urinary tract infection
  11. ACYCLOVIR [Concomitant]
     Active Substance: ACYCLOVIR
     Indication: Systemic candida
     Dosage: UNK
  12. ACYCLOVIR [Concomitant]
     Active Substance: ACYCLOVIR
     Indication: Urinary tract infection

REACTIONS (3)
  - Stevens-Johnson syndrome [Recovering/Resolving]
  - Drug interaction [Recovering/Resolving]
  - Off label use [Unknown]
